FAERS Safety Report 8473075-0 (Version None)
Quarter: 2012Q2

REPORT INFORMATION
  Report Type: 
  Country: None (occurrence: None)
  Receive Date: 20120627
  Receipt Date: 20120618
  Transmission Date: 20120825
  Serious: Yes (Hospitalization)
  Sender: FDA-Public Use
  Company Number: GB-ROCHE-1015315

PATIENT
  Sex: Male

DRUGS (11)
  1. DIPYRIDAMOLE [Concomitant]
     Dates: start: 20051216, end: 20111030
  2. RANIBIZUMAB [Suspect]
     Route: 050
     Dates: start: 20110915, end: 20110915
  3. METFORMIN HCL [Concomitant]
     Dates: start: 20040914
  4. RANIBIZUMAB [Suspect]
     Indication: DIABETIC RETINAL OEDEMA
     Route: 050
     Dates: start: 20110217, end: 20110217
  5. FUROSEMIDE [Concomitant]
     Dates: start: 20071205
  6. ATORVASTATIN [Concomitant]
     Dates: start: 20010330
  7. AVASTIN [Suspect]
     Indication: DIABETIC RETINAL OEDEMA
  8. ASPIRIN [Concomitant]
     Dates: start: 20110806, end: 20111030
  9. ISOSORBIDE MONONITRATE [Concomitant]
     Dates: start: 20060105
  10. IRBESARTAN [Concomitant]
     Dates: start: 20061031
  11. NOVOLOG MIX 70/30 [Concomitant]
     Dates: start: 20090611

REACTIONS (3)
  - CEREBROVASCULAR ACCIDENT [None]
  - TRANSIENT ISCHAEMIC ATTACK [None]
  - CONCOMITANT DISEASE PROGRESSION [None]
